FAERS Safety Report 9937126 (Version 1)
Quarter: 2014Q1

REPORT INFORMATION
  Report Type: Spontaneous
  Country: RU (occurrence: RU)
  Receive Date: 20140301
  Receipt Date: 20140301
  Transmission Date: 20141002
  Serious: Yes (Death)
  Sender: FDA-Public Use
  Company Number: RU-ASTRAZENECA-2014SE13406

PATIENT
  Age: 60 Year
  Sex: Female
  Weight: 98 kg

DRUGS (9)
  1. BRILINTA [Suspect]
     Indication: ACUTE MYOCARDIAL INFARCTION
     Route: 048
     Dates: start: 20140208
  2. ATORVASTATIN [Concomitant]
     Route: 048
     Dates: start: 20140208
  3. HEPARIN [Concomitant]
     Dates: start: 20140208
  4. OMEZ [Concomitant]
     Route: 048
     Dates: start: 20140208
  5. EGILOK [Concomitant]
     Route: 048
     Dates: start: 20140208
  6. ENALAPRIL [Concomitant]
     Route: 048
     Dates: start: 20140208
  7. CARDIOMAGNYL [Concomitant]
     Route: 048
     Dates: start: 20140208
  8. WARFARIN [Concomitant]
     Route: 042
     Dates: start: 20140208
  9. SODIUM CHLORIDE+HEPARIN [Concomitant]
     Dosage: ONCE/SINGLE ADMINISTRATION

REACTIONS (1)
  - Cardiogenic shock [Fatal]
